FAERS Safety Report 17665677 (Version 1)
Quarter: 2020Q2

REPORT INFORMATION
  Report Type: Spontaneous
  Country: US (occurrence: US)
  Receive Date: 20200413
  Receipt Date: 20200413
  Transmission Date: 20200713
  Serious: No
  Sender: FDA-Public Use
  Company Number: None

PATIENT
  Age: 58 Year
  Sex: Female

DRUGS (1)
  1. RETACRIT [Suspect]
     Active Substance: EPOETIN ALFA-EPBX
     Route: 058
     Dates: start: 202003

REACTIONS (2)
  - Intentional product use issue [None]
  - Anaemia [None]
